FAERS Safety Report 23903609 (Version 5)
Quarter: 2024Q3

REPORT INFORMATION
  Report Type: Report from Study
  Country: JP (occurrence: JP)
  Receive Date: 20240527
  Receipt Date: 20240812
  Transmission Date: 20241017
  Serious: Yes (Hospitalization, Other)
  Sender: ASTELLAS
  Company Number: JP-ASTELLAS-2022JP012375

PATIENT
  Age: 33 Year
  Sex: Female

DRUGS (48)
  1. ROXADUSTAT [Suspect]
     Active Substance: ROXADUSTAT
     Indication: Nephrogenic anaemia
     Route: 048
     Dates: start: 20220418
  2. ROXADUSTAT [Suspect]
     Active Substance: ROXADUSTAT
     Indication: Nephrogenic anaemia
     Route: 048
     Dates: start: 20220418
  3. ROXADUSTAT [Suspect]
     Active Substance: ROXADUSTAT
     Indication: Nephrogenic anaemia
     Route: 048
     Dates: start: 20230724
  4. ROXADUSTAT [Suspect]
     Active Substance: ROXADUSTAT
     Route: 048
     Dates: start: 20240115
  5. ROXADUSTAT [Suspect]
     Active Substance: ROXADUSTAT
     Route: 048
     Dates: start: 20240226
  6. ROXADUSTAT [Suspect]
     Active Substance: ROXADUSTAT
     Route: 048
     Dates: start: 20240325
  7. TACROLIMUS [Suspect]
     Active Substance: TACROLIMUS
     Indication: Immunosuppressant drug therapy
     Dosage: UNK UNK, UNKNOWN FREQ.
     Route: 048
  8. PREDONINE [Suspect]
     Active Substance: PREDNISOLONE
     Indication: Immunosuppressant drug therapy
     Dosage: UNK UNK, UNKNOWN FREQ.
     Route: 048
     Dates: end: 20231016
  9. PREDONINE [Suspect]
     Active Substance: PREDNISOLONE
     Indication: Behcet^s syndrome
     Dosage: UNK UNK, UNKNOWN FREQ.
     Route: 048
     Dates: start: 20231024
  10. CELLCEPT [Suspect]
     Active Substance: MYCOPHENOLATE MOFETIL
     Indication: Immunosuppressant drug therapy
     Dosage: UNK UNK, UNKNOWN FREQ.
     Route: 048
  11. VALGANCICLOVIR HYDROCHLORIDE [Suspect]
     Active Substance: VALGANCICLOVIR HYDROCHLORIDE
     Indication: Cytomegalovirus gastrointestinal infection
     Dosage: UNK UNK, UNKNOWN FREQ.
     Route: 048
     Dates: start: 20230908, end: 20230921
  12. PREDONINE [Suspect]
     Active Substance: PREDNISOLONE
     Indication: Behcet^s syndrome
     Dosage: UNK UNK, UNKNOWN FREQ.
     Route: 042
     Dates: start: 20231017, end: 20231023
  13. PREDONINE [Suspect]
     Active Substance: PREDNISOLONE
     Indication: Immunosuppressant drug therapy
  14. HUMALOG [Concomitant]
     Active Substance: INSULIN LISPRO
     Indication: Diabetes mellitus
     Dosage: UNK UNK, UNKNOWN FREQ.
     Route: 058
  15. INSULIN GLARGINE RECOMBINANT [Concomitant]
     Active Substance: INSULIN GLARGINE
     Indication: Diabetes mellitus
     Dosage: UNK UNK, UNKNOWN FREQ.
     Route: 058
  16. RABEPRAZOLE SODIUM [Concomitant]
     Active Substance: RABEPRAZOLE SODIUM
     Indication: Prophylaxis
     Dosage: UNK UNK, UNKNOWN FREQ.
     Route: 048
  17. SULFAMETHOXAZOLE\TRIMETHOPRIM [Concomitant]
     Active Substance: SULFAMETHOXAZOLE\TRIMETHOPRIM
     Indication: Prophylaxis
     Dosage: UNK UNK, UNKNOWN FREQ.
     Route: 048
  18. TETRAFERRIC TRICITRATE DECAHYDRATE [Concomitant]
     Active Substance: TETRAFERRIC TRICITRATE DECAHYDRATE
     Indication: Product used for unknown indication
     Route: 048
  19. TETRAFERRIC TRICITRATE DECAHYDRATE [Concomitant]
     Active Substance: TETRAFERRIC TRICITRATE DECAHYDRATE
     Route: 048
  20. MEDROXYPROGESTERONE [Concomitant]
     Active Substance: MEDROXYPROGESTERONE
     Indication: Polycystic ovarian syndrome
     Dosage: UNK UNK, UNKNOWN FREQ.
     Route: 048
     Dates: start: 20220610, end: 20230924
  21. CEFTRIAXONE SODIUM [Concomitant]
     Active Substance: CEFTRIAXONE SODIUM
     Indication: Pyelonephritis
     Dosage: UNK UNK, UNKNOWN FREQ.
     Route: 042
     Dates: start: 20220625, end: 20220702
  22. CEFTRIAXONE SODIUM [Concomitant]
     Active Substance: CEFTRIAXONE SODIUM
     Indication: Streptococcal infection
     Dosage: UNK UNK, UNKNOWN FREQ.
     Route: 042
     Dates: start: 20220823, end: 20220823
  23. CEFTRIAXONE SODIUM [Concomitant]
     Active Substance: CEFTRIAXONE SODIUM
     Indication: Tonsillitis
     Dosage: UNK UNK, UNKNOWN FREQ.
     Route: 042
     Dates: start: 20220910, end: 20220910
  24. CEFTRIAXONE SODIUM [Concomitant]
     Active Substance: CEFTRIAXONE SODIUM
     Indication: Pyelonephritis acute
     Dosage: UNK UNK, UNKNOWN FREQ.
     Route: 042
     Dates: start: 20230313, end: 20230313
  25. AMOXICILLIN [Concomitant]
     Active Substance: AMOXICILLIN
     Indication: Streptococcal infection
     Dosage: UNK UNK, UNKNOWN FREQ.
     Route: 048
     Dates: start: 20220824, end: 20220902
  26. AMOXICILLIN [Concomitant]
     Active Substance: AMOXICILLIN
     Indication: Pyelonephritis acute
     Dosage: UNK UNK, UNKNOWN FREQ.
     Route: 048
     Dates: start: 20230321, end: 20230328
  27. ACETAMINOPHEN [Concomitant]
     Active Substance: ACETAMINOPHEN
     Indication: Pyelonephritis acute
     Dosage: UNK UNK, UNKNOWN FREQ.
     Route: 042
     Dates: start: 20230313, end: 20230313
  28. METOCLOPRAMIDE [Concomitant]
     Active Substance: METOCLOPRAMIDE
     Indication: Prophylaxis
     Dosage: UNK UNK, UNKNOWN FREQ.
     Route: 042
     Dates: start: 20230313, end: 20230313
  29. AMLODIPINE [Concomitant]
     Active Substance: AMLODIPINE BESYLATE
     Indication: Hypertension
     Dosage: UNK UNK, UNKNOWN FREQ.
     Route: 065
  30. Marzulene [Concomitant]
     Indication: Gastritis
     Dosage: UNK UNK, UNKNOWN FREQ.
     Route: 048
     Dates: start: 20230522, end: 20230607
  31. SODIUM GUALENATE MONOHYDRATE [Concomitant]
     Active Substance: SODIUM GUALENATE MONOHYDRATE
     Indication: Stomatitis
     Dosage: UNK UNK, UNKNOWN FREQ.
     Route: 050
     Dates: start: 20230705, end: 20230710
  32. SODIUM GUALENATE MONOHYDRATE [Concomitant]
     Active Substance: SODIUM GUALENATE MONOHYDRATE
     Indication: Oral candidiasis
     Dosage: UNK UNK, UNKNOWN FREQ.
     Route: 050
     Dates: start: 20231017
  33. DUPHASTON [Concomitant]
     Active Substance: DYDROGESTERONE
     Indication: Polycystic ovarian syndrome
     Dosage: UNK UNK, UNKNOWN FREQ.
     Route: 048
     Dates: start: 20230925
  34. LENOGRASTIM [Concomitant]
     Active Substance: LENOGRASTIM
     Indication: White blood cell count decreased
     Dosage: UNK UNK, UNKNOWN FREQ.
     Route: 058
     Dates: start: 20230925, end: 20230925
  35. PENTASA [Concomitant]
     Active Substance: MESALAMINE
     Indication: Behcet^s syndrome
     Dosage: UNK UNK, UNKNOWN FREQ.
     Route: 048
     Dates: start: 20231011, end: 20231016
  36. PENTASA [Concomitant]
     Active Substance: MESALAMINE
     Dosage: UNK UNK, UNKNOWN FREQ.
     Route: 048
     Dates: start: 20231106, end: 20240205
  37. PIPERACILLIN SODIUM\TAZOBACTAM SODIUM [Concomitant]
     Active Substance: PIPERACILLIN SODIUM\TAZOBACTAM SODIUM
     Indication: Klebsiella infection
     Dosage: UNK UNK, UNKNOWN FREQ.
     Route: 042
     Dates: start: 20231016, end: 20231023
  38. PIPERACILLIN SODIUM\TAZOBACTAM SODIUM [Concomitant]
     Active Substance: PIPERACILLIN SODIUM\TAZOBACTAM SODIUM
     Indication: Behcet^s syndrome
  39. AMLODIPINE [Concomitant]
     Active Substance: AMLODIPINE BESYLATE
     Indication: Hypertension
     Dosage: UNK UNK, UNKNOWN FREQ.
     Route: 048
     Dates: start: 20231023
  40. TRIAMCINOLONE [Concomitant]
     Active Substance: TRIAMCINOLONE
     Indication: Stomatitis
     Dosage: UNK UNK, UNKNOWN FREQ.
     Route: 050
     Dates: start: 20231204, end: 20231214
  41. COLCHICINE [Concomitant]
     Active Substance: COLCHICINE
     Indication: Behcet^s syndrome
     Dosage: UNK UNK, UNKNOWN FREQ.
     Route: 048
     Dates: start: 20231225, end: 20240115
  42. SULFASALAZINE [Concomitant]
     Active Substance: SULFASALAZINE
     Indication: Behcet^s syndrome
     Dosage: UNK UNK, UNKNOWN FREQ.
     Route: 048
     Dates: start: 20240207, end: 20240319
  43. FOLIC ACID [Concomitant]
     Active Substance: FOLIC ACID
     Indication: Prophylaxis
     Dosage: UNK UNK, UNKNOWN FREQ.
     Route: 048
     Dates: start: 20240226, end: 20240319
  44. IMURAN [Concomitant]
     Active Substance: AZATHIOPRINE
     Indication: Behcet^s syndrome
     Dosage: UNK UNK, UNKNOWN FREQ.
     Route: 048
     Dates: start: 20240401, end: 20240410
  45. FUNGIZONE [Concomitant]
     Active Substance: AMPHOTERICIN B
     Indication: Oral candidiasis
     Dosage: UNK UNK, UNKNOWN FREQ.
     Route: 050
     Dates: start: 20240412
  46. AMINO ACIDS\CARBOHYDRATES\MINERALS\SOYBEAN OIL\VITAMINS [Concomitant]
     Active Substance: AMINO ACIDS\CARBOHYDRATES\MINERALS\SOYBEAN OIL\VITAMINS
     Indication: Behcet^s syndrome
     Dosage: UNK UNK, UNKNOWN FREQ.
     Route: 065
  47. CALONAL [Concomitant]
     Active Substance: ACETAMINOPHEN
     Indication: Behcet^s syndrome
     Dosage: UNK UNK, UNKNOWN FREQ.
     Route: 065
  48. ADALIMUMAB [Concomitant]
     Active Substance: ADALIMUMAB
     Indication: Behcet^s syndrome
     Dosage: UNK UNK, UNKNOWN FREQ.
     Route: 065

REACTIONS (18)
  - Behcet^s syndrome [Not Recovered/Not Resolved]
  - Pyelonephritis [Recovered/Resolved]
  - Hypertension [Recovered/Resolved]
  - Pyelonephritis acute [Recovered/Resolved]
  - Hyperglycaemia [Recovering/Resolving]
  - Streptococcal infection [Recovered/Resolved]
  - Tonsillitis [Recovered/Resolved]
  - Blood iron decreased [Not Recovered/Not Resolved]
  - COVID-19 [Recovered/Resolved]
  - Gastritis [Recovered/Resolved]
  - Stomatitis [Recovered/Resolved]
  - Drug-induced liver injury [Recovered/Resolved]
  - White blood cell count decreased [Recovered/Resolved]
  - Oral candidiasis [Recovered/Resolved]
  - Stomatitis [Recovered/Resolved]
  - Klebsiella infection [Recovered/Resolved]
  - Hypertension [Recovered/Resolved]
  - Oral candidiasis [Not Recovered/Not Resolved]

NARRATIVE: CASE EVENT DATE: 20220625
